FAERS Safety Report 9160497 (Version 1)
Quarter: 2013Q1

REPORT INFORMATION
  Report Type: Spontaneous
  Country: AU (occurrence: None)
  Receive Date: 20130215
  Receipt Date: 20130215
  Transmission Date: 20140127
  Serious: Yes (Other)
  Sender: FDA-Public Use
  Company Number: 2013-0720

PATIENT
  Sex: Male

DRUGS (3)
  1. LANREOTIDE [Suspect]
     Indication: PRODUCT USED FOR UNKNOWN INDICATION
  2. TACE [Suspect]
     Indication: PRODUCT USED FOR UNKNOWN INDICATION
  3. ZOMETA (ZOLEDRONIC ACID) [Suspect]
     Indication: PRODUCT USED FOR UNKNOWN INDICATION

REACTIONS (3)
  - Malignant neoplasm progression [None]
  - Pancreatic neuroendocrine tumour metastatic [None]
  - Renal impairment [None]
